FAERS Safety Report 4654032-9 (Version None)
Quarter: 2005Q2

REPORT INFORMATION
  Report Type: 
  Country: None (occurrence: None)
  Receive Date: 20050404
  Receipt Date: 20050111
  Transmission Date: 20051028
  Serious: No
  Sender: FDA-Public Use
  Company Number: USA050188052

PATIENT
  Sex: Female

DRUGS (1)
  1. CYMBALTA [Suspect]
     Indication: NEUROPATHIC PAIN
     Dosage: 30 MG DAY

REACTIONS (3)
  - FEELING ABNORMAL [None]
  - HYPERTENSION [None]
  - NAUSEA [None]
